FAERS Safety Report 9671954 (Version 1)
Quarter: 2013Q4

REPORT INFORMATION
  Report Type: Report from Study
  Country: CA (occurrence: CA)
  Receive Date: 20131106
  Receipt Date: 20131106
  Transmission Date: 20140711
  Serious: Yes (Hospitalization)
  Sender: FDA-Public Use
  Company Number: CA-JNJFOC-20131017883

PATIENT
  Age: 60 Year
  Sex: Male
  Weight: 125 kg

DRUGS (1)
  1. REMICADE [Suspect]
     Indication: PSORIATIC ARTHROPATHY
     Route: 042
     Dates: start: 20120425

REACTIONS (4)
  - Corneal disorder [Unknown]
  - Corneal transplant [Unknown]
  - Suture related complication [Unknown]
  - Influenza [Unknown]
